FAERS Safety Report 25319845 (Version 2)
Quarter: 2025Q2

REPORT INFORMATION
  Report Type: Spontaneous
  Country: US (occurrence: US)
  Receive Date: 20250515
  Receipt Date: 20250523
  Transmission Date: 20250717
  Serious: No
  Sender: TORRENT PHARMA INC.
  Company Number: US-TORRENT-00014337

PATIENT
  Sex: Female

DRUGS (1)
  1. ROSUVASTATIN CALCIUM [Suspect]
     Active Substance: ROSUVASTATIN CALCIUM
     Indication: Product used for unknown indication
     Dosage: PINK, BEVELED-EDGE, BICONVEX, ROUND SHAPE, SIDE 1: R5, 1 TABLET BY MOUTH DAILY
     Route: 048

REACTIONS (1)
  - Pain in extremity [Unknown]
